FAERS Safety Report 12971654 (Version 2)
Quarter: 2016Q4

REPORT INFORMATION
  Report Type: Spontaneous
  Country: US (occurrence: US)
  Receive Date: 20161123
  Receipt Date: 20161207
  Transmission Date: 20170207
  Serious: Yes (Death, Hospitalization)
  Sender: FDA-Public Use
  Company Number: US-CONCORDIA PHARMACEUTICALS INC.-GSH201611-005953

PATIENT
  Age: 18 Year
  Sex: Female

DRUGS (1)
  1. ZONISAMIDE. [Suspect]
     Active Substance: ZONISAMIDE
     Indication: SUICIDE ATTEMPT
     Route: 048

REACTIONS (6)
  - Brain oedema [Unknown]
  - Generalised tonic-clonic seizure [Unknown]
  - Increased bronchial secretion [Unknown]
  - Intentional overdose [Fatal]
  - Coma [Unknown]
  - Cardio-respiratory arrest [Unknown]
